FAERS Safety Report 6160303-X (Version None)
Quarter: 2009Q2

REPORT INFORMATION
  Report Type: 
  Country: None (occurrence: None)
  Receive Date: 20090420
  Receipt Date: 20090408
  Transmission Date: 20091009
  Serious: Yes (Hospitalization)
  Sender: FDA-Public Use
  Company Number: AU-NOVOPROD-286159

PATIENT
  Age: 71 Year
  Sex: Male

DRUGS (5)
  1. NOVOSEVEN [Suspect]
     Indication: HAEMORRHAGE
     Dosage: 7.2 MG, SINGLE
     Dates: start: 20081217, end: 20081217
  2. ASPIRIN [Concomitant]
     Dates: end: 20081214
  3. HEPARIN [Concomitant]
     Indication: PULMONARY EMBOLISM
  4. PROTAMINE SULFATE [Concomitant]
     Dates: end: 20081216
  5. APROTININ [Concomitant]
     Dates: end: 20081216

REACTIONS (3)
  - COLLAPSE OF LUNG [None]
  - DEEP VEIN THROMBOSIS [None]
  - PULMONARY EMBOLISM [None]
